FAERS Safety Report 16384277 (Version 1)
Quarter: 2019Q2

REPORT INFORMATION
  Report Type: Spontaneous
  Country: US (occurrence: US)
  Receive Date: 20190531
  Receipt Date: 20190531
  Transmission Date: 20190711
  Serious: No
  Sender: FDA-Public Use
  Company Number: None

PATIENT
  Age: 57 Year
  Sex: Female
  Weight: 69.75 kg

DRUGS (1)
  1. AIMOVIG [Suspect]
     Active Substance: ERENUMAB-AOOE
     Indication: MIGRAINE
     Dosage: ?          QUANTITY:1 INJECTION(S);OTHER FREQUENCY:ONCE A MONTH;OTHER ROUTE:INJECTION INTO STOMACH AREA?
     Dates: start: 20190529

REACTIONS (7)
  - Malaise [None]
  - Injection site pruritus [None]
  - Dizziness [None]
  - Nausea [None]
  - Headache [None]
  - Feeling abnormal [None]
  - Injection site swelling [None]

NARRATIVE: CASE EVENT DATE: 20190530
